FAERS Safety Report 21187472 (Version 4)
Quarter: 2023Q1

REPORT INFORMATION
  Report Type: Report from Study
  Country: CN (occurrence: CN)
  Receive Date: 20220808
  Receipt Date: 20230110
  Transmission Date: 20230418
  Serious: Yes (Death, Hospitalization)
  Sender: FDA-Public Use
  Company Number: CN-GILEAD-2022-0591922

PATIENT
  Age: 68 Year
  Sex: Male
  Weight: 65 kg

DRUGS (3)
  1. SACITUZUMAB GOVITECAN [Suspect]
     Active Substance: SACITUZUMAB GOVITECAN
     Indication: Transitional cell carcinoma
     Dosage: 630 MG C1D1, C1D8
     Route: 042
     Dates: start: 20220701, end: 20220708
  2. SACITUZUMAB GOVITECAN [Suspect]
     Active Substance: SACITUZUMAB GOVITECAN
     Dosage: 630 MG C2D1
     Route: 042
     Dates: start: 20220722
  3. SACITUZUMAB GOVITECAN [Suspect]
     Active Substance: SACITUZUMAB GOVITECAN
     Dosage: 630 MG C3D1
     Route: 042
     Dates: start: 20220812, end: 20220812

REACTIONS (1)
  - May-Thurner syndrome [Fatal]

NARRATIVE: CASE EVENT DATE: 20220729
